FAERS Safety Report 8613238-4 (Version None)
Quarter: 2012Q3

REPORT INFORMATION
  Report Type: 
  Country: None (occurrence: None)
  Receive Date: 20120822
  Receipt Date: 20120802
  Transmission Date: 20120928
  Serious: Yes (Hospitalization)
  Sender: FDA-Public Use
  Company Number: JP-009507513-1204USA00186

PATIENT

DRUGS (3)
  1. JANUVIA [Suspect]
     Dosage: DAILY DOSAGE UNKNOWN
     Route: 048
     Dates: start: 20110201
  2. LIVALO [Concomitant]
     Dosage: DAILY DOSAGE UNKNOWN
     Route: 048
  3. TAMSULOSIN HCL [Concomitant]
     Dosage: DAILY DOSAGE UNKNOWN
     Route: 048

REACTIONS (1)
  - DIZZINESS [None]
